FAERS Safety Report 11382340 (Version 2)
Quarter: 2015Q3

REPORT INFORMATION
  Report Type: Spontaneous
  Country: JP (occurrence: JP)
  Receive Date: 20150814
  Receipt Date: 20150820
  Transmission Date: 20151125
  Serious: Yes (Hospitalization, Other)
  Sender: FDA-Public Use
  Company Number: JP-009507513-1507JPN002597

PATIENT
  Age: 70 Year
  Sex: Female

DRUGS (11)
  1. ETIZOLAM [Concomitant]
     Active Substance: ETIZOLAM
     Dosage: 6.5 MG, ONCE A DAY
     Route: 048
  2. HYDROCHLOROTHIAZIDE. [Concomitant]
     Active Substance: HYDROCHLOROTHIAZIDE
     Dosage: 125 MG, ONCE A DAY
     Route: 048
  3. REMERON [Suspect]
     Active Substance: MIRTAZAPINE
     Dosage: 90 MG, UNK
     Route: 048
  4. EFONIDIPINE [Concomitant]
     Active Substance: EFONIDIPINE
     Dosage: 600 MG, ONCE A DAY
     Route: 048
  5. CLOTIAZEPAM [Concomitant]
     Active Substance: CLOTIAZEPAM
     Dosage: 520 MG, ONCE A DAY
     Route: 048
  6. NITRAZEPAM [Concomitant]
     Active Substance: NITRAZEPAM
     Dosage: 75 MG,ONCE A DAY
     Route: 048
  7. LOSARTAN POTASSIUM. [Suspect]
     Active Substance: LOSARTAN POTASSIUM
     Dosage: 500 MG, UNK
     Route: 048
  8. TOFISOPAM [Concomitant]
     Active Substance: TOFISOPAM
     Dosage: 750 MG, ONCE A DAY
     Route: 048
  9. BISOPROLOL [Concomitant]
     Active Substance: BISOPROLOL
     Dosage: 70 MG, ONCE A DAY
     Route: 048
  10. IMIDAPRIL [Concomitant]
     Active Substance: IMIDAPRIL
     Dosage: 250 MG, ONCE A DAY
     Route: 048
  11. SEPAMIT FINE GRANULES 1% [Suspect]
     Active Substance: NIFEDIPINE
     Dosage: 100 MG, ONCE A DAY
     Route: 048

REACTIONS (1)
  - Intentional overdose [Unknown]
